FAERS Safety Report 11513162 (Version 1)
Quarter: 2015Q3

REPORT INFORMATION
  Report Type: Spontaneous
  Country: US (occurrence: None)
  Receive Date: 20150915
  Receipt Date: 20150915
  Transmission Date: 20151125
  Serious: Yes (Other)
  Sender: FDA-Public Use
  Company Number: None

PATIENT
  Age: 53 Year
  Sex: Female
  Weight: 83.92 kg

DRUGS (10)
  1. ANORO VITAMINS [Concomitant]
  2. MULTI-MINERAL [Concomitant]
  3. VIT A [Concomitant]
  4. VITAMIN E [Concomitant]
     Active Substance: .ALPHA.-TOCOPHEROL
  5. VIT C WITH BIFLAVANOIDS [Concomitant]
  6. VITAMIN D [Suspect]
     Active Substance: CHOLECALCIFEROL
  7. ACIDOPHILOUS [Concomitant]
     Active Substance: LACTOBACILLUS ACIDOPHILUS
  8. VITAMIN B COMPLEX [Concomitant]
     Active Substance: CYANOCOBALAMIN\DEXPANTHENOL\NIACINAMIDE\PYRIDOXINE HYDROCHLORIDE\RIBOFLAVIN 5^-PHOSPHATE SODIUM\THIAMINE HYDROCHLORIDE\VITAMIN B COMPLEX
  9. STRATTERA [Suspect]
     Active Substance: ATOMOXETINE HYDROCHLORIDE
     Indication: ATTENTION DEFICIT/HYPERACTIVITY DISORDER
     Route: 048
  10. OXYMETAZOLINE [Concomitant]
     Active Substance: OXYMETAZOLINE

REACTIONS (5)
  - Hypoaesthesia [None]
  - Chest pain [None]
  - Pain in extremity [None]
  - Speech disorder [None]
  - Dyspnoea [None]
